FAERS Safety Report 9921488 (Version 2)
Quarter: 2014Q2

REPORT INFORMATION
  Report Type: Spontaneous
  Country: US (occurrence: US)
  Receive Date: 20140225
  Receipt Date: 20140408
  Transmission Date: 20141212
  Serious: Yes (Hospitalization)
  Sender: FDA-Public Use
  Company Number: PHEH2014US003719

PATIENT
  Sex: Female

DRUGS (2)
  1. GILENYA [Suspect]
     Indication: MULTIPLE SCLEROSIS
     Route: 048
  2. PROVIGIL//MODAFINIL [Concomitant]
     Indication: FATIGUE
     Dosage: 200 MG, BID

REACTIONS (5)
  - Complex partial seizures [Recovered/Resolved]
  - Confusional state [Unknown]
  - Headache [Unknown]
  - Somnolence [Unknown]
  - Lethargy [Unknown]
